FAERS Safety Report 8505821-1 (Version None)
Quarter: 2012Q2

REPORT INFORMATION
  Report Type: 
  Country: None (occurrence: None)
  Receive Date: 20120629
  Receipt Date: 20120620
  Transmission Date: 20120825
  Serious: Yes (Hospitalization)
  Sender: FDA-Public Use
  Company Number: WAES 1205USA05003

PATIENT
  Age: 37 Year
  Sex: Male

DRUGS (3)
  1. ISENTRESS [Suspect]
     Indication: HIV INFECTION
     Dosage: 800 MG/DAILY PO
     Route: 048
     Dates: start: 20100608
  2. PEPCID RPD [Concomitant]
  3. TRUVADA [Suspect]
     Indication: HIV INFECTION
     Dosage: 1 DOSE/DAILY PO
     Route: 048
     Dates: start: 20100608

REACTIONS (4)
  - PNEUMOCYSTIS JIROVECI PNEUMONIA [None]
  - IMMUNE RECONSTITUTION SYNDROME [None]
  - CONDITION AGGRAVATED [None]
  - BLOOD LACTATE DEHYDROGENASE INCREASED [None]
